FAERS Safety Report 7575012-X (Version None)
Quarter: 2011Q2

REPORT INFORMATION
  Report Type: 
  Country: None (occurrence: None)
  Receive Date: 20110627
  Receipt Date: 20080826
  Transmission Date: 20111010
  Serious: Yes (Death, Hospitalization)
  Sender: FDA-Public Use
  Company Number: US-BAYER-200832229NA

PATIENT
  Age: 77 Year
  Sex: Female
  Weight: 56 kg

DRUGS (20)
  1. ASPIRIN [Concomitant]
  2. TRASYLOL [Suspect]
     Indication: MITRAL VALVE REPLACEMENT
     Dosage: 200 ML LOADING DOSE
     Route: 042
     Dates: start: 20050823, end: 20050823
  3. HEPARIN [Concomitant]
     Dosage: 17 K-UNITS
     Route: 042
     Dates: start: 20050823, end: 20050823
  4. PROTAMINE SULFATE [Concomitant]
     Dosage: 100 MG
     Route: 042
     Dates: start: 20050823, end: 20050823
  5. MILRINONE [Concomitant]
     Dosage: 1.25 MG
     Route: 042
     Dates: start: 20050823, end: 20050823
  6. PLASMA [Concomitant]
     Dosage: 2 UNITS
     Route: 042
     Dates: start: 20050823, end: 20050825
  7. TRASYLOL [Suspect]
     Indication: CORONARY ARTERY BYPASS
     Dosage: 1ML TEST DOSE
     Route: 042
     Dates: start: 20050823, end: 20050823
  8. EPINEPHRINE [Concomitant]
     Dosage: 2-7 MCG/MIN
     Route: 042
     Dates: start: 20050823, end: 20050823
  9. EPHEDRINE [Concomitant]
     Dosage: 15 MG
     Dates: start: 20050823, end: 20050823
  10. PRIMACOR [Concomitant]
     Dosage: UNK
     Dates: start: 20050824
  11. LIDOCAINE [Concomitant]
     Dosage: UNK
     Route: 042
     Dates: start: 20050824
  12. PLATELETS [Concomitant]
     Dosage: 6 PACKS
     Route: 042
     Dates: start: 20050823, end: 20050823
  13. DOPAMINE HCL [Concomitant]
     Dosage: UNK
     Route: 042
     Dates: start: 20050824
  14. CEFAZOLIN [Concomitant]
     Dosage: 1000 MG
     Route: 042
     Dates: start: 20050823, end: 20050823
  15. CRYOPRECIPITATES [Concomitant]
     Dosage: 2 6 PACKS
     Route: 042
     Dates: start: 20050823, end: 20050823
  16. TRASYLOL [Suspect]
     Dosage: 50 ML/HOUR
     Route: 042
     Dates: start: 20050823, end: 20050823
  17. ZOCOR [Concomitant]
     Indication: BLOOD CHOLESTEROL INCREASED
     Dosage: 25 MG, QD
  18. PLAVIX [Concomitant]
     Dosage: 75 MG, QD
     Route: 048
  19. MIDAZOLAM HCL [Concomitant]
  20. ATENOLOL [Concomitant]
     Indication: HYPERTENSION
     Dosage: 50 MG, QD
     Route: 048

REACTIONS (2)
  - INJURY [None]
  - RENAL FAILURE [None]
